FAERS Safety Report 12410466 (Version 1)
Quarter: 2016Q2

REPORT INFORMATION
  Report Type: Other
  Country: KR (occurrence: KR)
  Receive Date: 20160527
  Receipt Date: 20160527
  Transmission Date: 20160815
  Serious: Yes (Death)
  Sender: FDA-Public Use
  Company Number: KR-HETERO LABS LTD-1052891

PATIENT
  Age: 77 Year
  Sex: Male

DRUGS (1)
  1. LINEZOLID. [Suspect]
     Active Substance: LINEZOLID
     Route: 065

REACTIONS (1)
  - Lactic acidosis [Fatal]
